FAERS Safety Report 10644256 (Version 2)
Quarter: 2014Q4

REPORT INFORMATION
  Report Type: Spontaneous
  Country: JP (occurrence: JP)
  Receive Date: 20141210
  Receipt Date: 20141216
  Transmission Date: 20150529
  Serious: Yes (Hospitalization)
  Sender: FDA-Public Use
  Company Number: JP-ABBVIE-14P-087-1317723-00

PATIENT
  Age: 15 Year
  Sex: Male

DRUGS (6)
  1. VALPROATE SALT NOT SPECIFIED [Suspect]
     Active Substance: VALPROATE SODIUM
     Indication: CONVULSION PROPHYLAXIS
     Dosage: STARTED AT AGE 12 YEARS
     Route: 065
  2. VALPROATE SALT NOT SPECIFIED [Suspect]
     Active Substance: VALPROATE SODIUM
     Dosage: INCREASED AT AGE 15, TWO MONTHS BEFORE ADMISSION
     Route: 065
  3. L CARNITINE [Concomitant]
     Active Substance: LEVOCARNITINE
     Indication: CARNITINE DEFICIENCY
     Dosage: ADDED AT AGE 15, TWO MONTHS BEFORE ADMISSION
     Route: 065
  4. CARBAMAZEPINE. [Concomitant]
     Active Substance: CARBAMAZEPINE
     Indication: CONVULSION PROPHYLAXIS
     Route: 048
  5. L CARNITINE [Concomitant]
     Active Substance: LEVOCARNITINE
     Indication: PROPHYLAXIS
  6. CEFOTAXIME [Concomitant]
     Active Substance: CEFOTAXIME\CEFOTAXIME SODIUM
     Indication: BRONCHOPNEUMONIA
     Route: 065

REACTIONS (13)
  - Beta 2 microglobulin urine increased [Recovered/Resolved]
  - Hypocarnitinaemia [Recovered/Resolved]
  - Fanconi syndrome [Recovered/Resolved]
  - Aminoaciduria [Recovered/Resolved]
  - Hypouricaemia [Recovered/Resolved]
  - Pyrexia [Recovered/Resolved]
  - Hypokalaemia [Recovered/Resolved]
  - Epilepsy [Unknown]
  - Proteinuria [Recovered/Resolved]
  - Weight decreased [Recovered/Resolved]
  - Red blood cell sedimentation rate increased [Recovered/Resolved]
  - Hypophosphataemia [Recovered/Resolved]
  - Glycosuria [Recovered/Resolved]
